FAERS Safety Report 15824684 (Version 2)
Quarter: 2019Q1

REPORT INFORMATION
  Report Type: Spontaneous
  Country: US (occurrence: US)
  Receive Date: 20190115
  Receipt Date: 20190118
  Transmission Date: 20190417
  Serious: Yes (Hospitalization)
  Sender: FDA-Public Use
  Company Number: US-PHARMING-PHAUS2019000029

PATIENT

DRUGS (32)
  1. PLAVIX [Concomitant]
     Active Substance: CLOPIDOGREL BISULFATE
  2. MACRODANTIN [Concomitant]
     Active Substance: NITROFURANTOIN
  3. FLUOXETINE [Concomitant]
     Active Substance: FLUOXETINE HYDROCHLORIDE
  4. CARVEDILOL. [Concomitant]
     Active Substance: CARVEDILOL
  5. SODIUM CHLORIDE. [Concomitant]
     Active Substance: SODIUM CHLORIDE
  6. EPINEPHRINE. [Concomitant]
     Active Substance: EPINEPHRINE
  7. CRESTOR [Concomitant]
     Active Substance: ROSUVASTATIN CALCIUM
  8. TRAZODONE HYDROCHLORIDE. [Concomitant]
     Active Substance: TRAZODONE HYDROCHLORIDE
  9. COQ10 [Concomitant]
     Active Substance: UBIDECARENONE
  10. KALBITOR [Concomitant]
     Active Substance: ECALLANTIDE
  11. JANUVIA [Concomitant]
     Active Substance: SITAGLIPTIN PHOSPHATE
  12. CLONAZEPAM. [Concomitant]
     Active Substance: CLONAZEPAM
  13. TRADJENTA [Concomitant]
     Active Substance: LINAGLIPTIN
  14. REQUIP [Concomitant]
     Active Substance: ROPINIROLE HYDROCHLORIDE
  15. AMITRIPTYLINE HCL [Concomitant]
     Active Substance: AMITRIPTYLINE
  16. TRIMETHOPRIM. [Concomitant]
     Active Substance: TRIMETHOPRIM
  17. AMOXICILLIN AND CLAVULANATE POTASSIUM [Concomitant]
     Active Substance: AMOXICILLIN\CLAVULANATE POTASSIUM
  18. STERILE WATER [Concomitant]
     Active Substance: WATER
  19. ASPIRIN. [Concomitant]
     Active Substance: ASPIRIN
  20. BUTALBITAL, ASPIRIN, AND CAFFEINE [Concomitant]
     Active Substance: ASPIRIN\BUTALBITAL\CAFFEINE
  21. MULTIVITAMINS [Concomitant]
     Active Substance: VITAMINS
  22. CALCIUM +D [Concomitant]
     Active Substance: CALCIUM\VITAMIN D
  23. CINRYZE [Concomitant]
     Active Substance: HUMAN C1-ESTERASE INHIBITOR
  24. EPIPEN [Concomitant]
     Active Substance: EPINEPHRINE
  25. PROCHLORPERAZINE MALEATE. [Concomitant]
     Active Substance: PROCHLORPERAZINE MALEATE
  26. RUCONEST [Suspect]
     Active Substance: HUMAN C1-ESTERASE INHIBITOR
     Indication: HEREDITARY ANGIOEDEMA
     Dosage: 3500 IU, AS NEEDED
     Route: 042
     Dates: start: 20180809
  27. TYLENOL EXTRA STRENGTH [Concomitant]
     Active Substance: ACETAMINOPHEN
  28. KEFLEX [Concomitant]
     Active Substance: CEPHALEXIN
  29. DIPHENHYDRAMINE. [Concomitant]
     Active Substance: DIPHENHYDRAMINE
  30. METFORMIN [Concomitant]
     Active Substance: METFORMIN HYDROCHLORIDE
  31. FIBER ADVANCE [Concomitant]
  32. NEXIUM [Concomitant]
     Active Substance: ESOMEPRAZOLE MAGNESIUM

REACTIONS (1)
  - Hereditary angioedema [Unknown]
